FAERS Safety Report 5644396-1 (Version None)
Quarter: 2008Q1

REPORT INFORMATION
  Report Type: 
  Country: None (occurrence: None)
  Receive Date: 20080227
  Receipt Date: 20080219
  Transmission Date: 20080703
  Serious: Yes (Death)
  Sender: FDA-Public Use
  Company Number: KADN20080009

PATIENT
  Age: 43 Year
  Sex: Male
  Weight: 177.5 kg

DRUGS (2)
  1. KADIAN [Suspect]
     Indication: PAIN
     Dosage: 30 MG PO Q12 HOURS PRN
     Dates: start: 20080131, end: 20080202
  2. DARVON [Concomitant]

REACTIONS (1)
  - OVERDOSE [None]
